FAERS Safety Report 14658964 (Version 1)
Quarter: 2018Q1

REPORT INFORMATION
  Report Type: Spontaneous
  Country: CN (occurrence: CN)
  Receive Date: 20180320
  Receipt Date: 20180320
  Transmission Date: 20180509
  Serious: Yes (Hospitalization, Other)
  Sender: FDA-Public Use
  Company Number: CN-ELI_LILLY_AND_COMPANY-CN201803003427

PATIENT
  Age: 70 Year
  Sex: Male

DRUGS (4)
  1. PAROXETINE. [Concomitant]
     Active Substance: PAROXETINE
     Indication: DEMENTIA ALZHEIMER^S TYPE
     Dosage: 20 MG, DAILY
     Route: 048
  2. PIRACETAM [Concomitant]
     Active Substance: PIRACETAM
     Indication: DEMENTIA ALZHEIMER^S TYPE
     Dosage: 1.2 G, EVERY 8 HRS
     Route: 048
  3. MEMANTINE. [Concomitant]
     Active Substance: MEMANTINE
     Indication: DEMENTIA ALZHEIMER^S TYPE
     Dosage: 20 MG, DAILY
     Route: 048
  4. OLANZAPINE. [Suspect]
     Active Substance: OLANZAPINE
     Indication: DEPRESSION
     Dosage: 10 MG, DAILY
     Route: 048

REACTIONS (3)
  - Pleural effusion [Recovered/Resolved]
  - Off label use [Unknown]
  - Eosinophilia [Recovered/Resolved]
